FAERS Safety Report 12992840 (Version 1)
Quarter: 2016Q4

REPORT INFORMATION
  Report Type: Spontaneous
  Country: US (occurrence: US)
  Receive Date: 20161202
  Receipt Date: 20161202
  Transmission Date: 20170207
  Serious: Yes (Death, Hospitalization, Other)
  Sender: FDA-Public Use
  Company Number: US-CLINIGEN GROUP PLC/ CLINIGEN HEALTHCARE LTD-E2B_00000315

PATIENT
  Age: 77 Year
  Sex: Female
  Weight: 61.7 kg

DRUGS (6)
  1. ETHYOL [Suspect]
     Active Substance: AMIFOSTINE
     Route: 058
     Dates: start: 20060511, end: 20060518
  2. CISPLATIN. [Concomitant]
     Active Substance: CISPLATIN
     Indication: PRODUCT USED FOR UNKNOWN INDICATION
  3. RADIATION THERAPY [Concomitant]
     Active Substance: RADIATION THERAPY
     Indication: PRODUCT USED FOR UNKNOWN INDICATION
     Dates: start: 20060418, end: 200606
  4. GEMCITABINE [Concomitant]
     Active Substance: GEMCITABINE\GEMCITABINE HYDROCHLORIDE
     Indication: PRODUCT USED FOR UNKNOWN INDICATION
  5. ZYRTEC [Concomitant]
     Active Substance: CETIRIZINE HYDROCHLORIDE
     Indication: PRODUCT USED FOR UNKNOWN INDICATION
  6. ETHYOL [Suspect]
     Active Substance: AMIFOSTINE
     Indication: PRODUCT USED FOR UNKNOWN INDICATION
     Route: 058
     Dates: start: 20060419, end: 20060510

REACTIONS (14)
  - White blood cell count increased [Unknown]
  - Chills [Recovered/Resolved]
  - Skin burning sensation [Unknown]
  - Rash papular [Unknown]
  - Injection site reaction [Recovered/Resolved]
  - Arthralgia [Unknown]
  - Metastases to lung [Fatal]
  - Metastatic neoplasm [Unknown]
  - Pyrexia [Recovered/Resolved]
  - Pruritus [Unknown]
  - Nausea [Recovered/Resolved]
  - Diarrhoea [Unknown]
  - Malaise [Unknown]
  - Skin injury [Unknown]

NARRATIVE: CASE EVENT DATE: 2006
